FAERS Safety Report 23226168 (Version 1)
Quarter: 2023Q4

REPORT INFORMATION
  Report Type: Spontaneous
  Country: CN (occurrence: CN)
  Receive Date: 20231124
  Receipt Date: 20231124
  Transmission Date: 20240110
  Serious: Yes (Other)
  Sender: FDA-Public Use
  Company Number: CN-002147023-NVSC2023CN249937

PATIENT
  Age: 12 Year
  Sex: Female
  Weight: 45 kg

DRUGS (1)
  1. TOBRAMYCIN [Suspect]
     Active Substance: TOBRAMYCIN
     Indication: Keratitis
     Dosage: 2 DRP, 4 TIMES A DAY
     Route: 065
     Dates: start: 20231108, end: 20231109

REACTIONS (4)
  - Corneal oedema [Recovered/Resolved]
  - Corneal opacity [Recovered/Resolved]
  - Conjunctival hyperaemia [Recovered/Resolved]
  - Conjunctival oedema [Recovered/Resolved]

NARRATIVE: CASE EVENT DATE: 20231109
